FAERS Safety Report 11197100 (Version 2)
Quarter: 2015Q2

REPORT INFORMATION
  Report Type: Spontaneous
  Country: BG (occurrence: BG)
  Receive Date: 20150617
  Receipt Date: 20150623
  Transmission Date: 20150821
  Serious: Yes (Death, Hospitalization, Other)
  Sender: FDA-Public Use
  Company Number: BG-SHIRE-BG201506183

PATIENT
  Age: 6 Year
  Sex: Male

DRUGS (1)
  1. ELAPRASE [Suspect]
     Active Substance: IDURSULFASE
     Indication: MUCOPOLYSACCHARIDOSIS II
     Dosage: 0.5 MG/KG, 1X/WEEK(EW)
     Route: 041
     Dates: start: 201410, end: 201506

REACTIONS (2)
  - Obstructive airways disorder [Not Recovered/Not Resolved]
  - Cardiac failure [Fatal]

NARRATIVE: CASE EVENT DATE: 20150610
